FAERS Safety Report 8162436-5 (Version None)
Quarter: 2012Q1

REPORT INFORMATION
  Report Type: 
  Country: None (occurrence: None)
  Receive Date: 20120224
  Receipt Date: 20120221
  Transmission Date: 20120608
  Serious: Yes (Hospitalization)
  Sender: FDA-Public Use
  Company Number: CR-B.I. PHARMACEUTICALS,INC./RIDGEFIELD-2012-MX-00068MX

PATIENT
  Sex: Female
  Weight: 108 kg

DRUGS (1)
  1. DABIGATRAN ETEXILATE [Suspect]
     Indication: KNEE ARTHROPLASTY

REACTIONS (3)
  - DYSPNOEA [None]
  - THROMBOSIS [None]
  - PULMONARY EMBOLISM [None]
